FAERS Safety Report 23814141 (Version 1)
Quarter: 2024Q2

REPORT INFORMATION
  Report Type: Spontaneous
  Country: DE (occurrence: DE)
  Receive Date: 20240503
  Receipt Date: 20240503
  Transmission Date: 20240716
  Serious: Yes (Other)
  Sender: FDA-Public Use
  Company Number: None

PATIENT
  Age: 17 Year
  Sex: Male
  Weight: 58 kg

DRUGS (1)
  1. ELIDEL [Suspect]
     Active Substance: PIMECROLIMUS
     Indication: Neurodermatitis
     Dosage: CREAM APPLIED TO THE BODY
     Route: 003
     Dates: start: 20240320, end: 20240323

REACTIONS (7)
  - Suicidal ideation [Unknown]
  - Personality change [Recovering/Resolving]
  - Screaming [Unknown]
  - Apathy [Unknown]
  - Speech disorder [Unknown]
  - Aggression [Recovering/Resolving]
  - Impulse-control disorder [Unknown]

NARRATIVE: CASE EVENT DATE: 20240323
